FAERS Safety Report 6012032-0 (Version None)
Quarter: 2008Q4

REPORT INFORMATION
  Report Type: 
  Country: None (occurrence: None)
  Receive Date: 20081218
  Receipt Date: 20081029
  Transmission Date: 20090506
  Serious: No
  Sender: FDA-Public Use
  Company Number: US-ASTRAZENECA-2008UW24273

PATIENT
  Sex: Male
  Weight: 88.5 kg

DRUGS (3)
  1. CRESTOR [Suspect]
     Indication: BLOOD CHOLESTEROL INCREASED
     Route: 048
     Dates: start: 20081001
  2. METOPROLOL TARTRATE [Concomitant]
  3. INHALERS [Concomitant]

REACTIONS (2)
  - HALLUCINATION [None]
  - SOMNAMBULISM [None]
